FAERS Safety Report 9867344 (Version 2)
Quarter: 2014Q1

REPORT INFORMATION
  Report Type: Spontaneous
  Country: US (occurrence: US)
  Receive Date: 20140204
  Receipt Date: 20140204
  Transmission Date: 20141002
  Serious: Yes (Hospitalization)
  Sender: FDA-Public Use
  Company Number: US-FRI-1000051742

PATIENT
  Sex: Female

DRUGS (1)
  1. ARMOUR THYROID [Suspect]
     Dosage: 180 MG
     Route: 048
     Dates: end: 201311

REACTIONS (3)
  - Hypoaesthesia [Recovered/Resolved]
  - Palpitations [Recovered/Resolved]
  - Hypertension [Recovered/Resolved]
